FAERS Safety Report 7910753-3 (Version None)
Quarter: 2011Q4

REPORT INFORMATION
  Report Type: 
  Country: None (occurrence: None)
  Receive Date: 20111112
  Receipt Date: 20111102
  Transmission Date: 20120403
  Serious: Yes (Hospitalization)
  Sender: FDA-Public Use
  Company Number: US-ASTRAZENECA-2011SE66261

PATIENT
  Age: 50 Year
  Sex: Female
  Weight: 63.5 kg

DRUGS (3)
  1. CRESTOR [Suspect]
     Route: 048
  2. PRAVASTATIN [Concomitant]
  3. CRESTOR [Suspect]
     Route: 048

REACTIONS (4)
  - MALAISE [None]
  - DRUG PRESCRIBING ERROR [None]
  - BLOOD PRESSURE INCREASED [None]
  - ASTHENIA [None]
